FAERS Safety Report 4348012-0 (Version None)
Quarter: 2004Q1

REPORT INFORMATION
  Report Type: 
  Country: None (occurrence: None)
  Receive Date: 20040325
  Receipt Date: 20040113
  Transmission Date: 20041129
  Serious: No
  Sender: FDA-Public Use
  Company Number: USA030433431

PATIENT
  Age: 76 Year
  Sex: Female
  Weight: 51 kg

DRUGS (6)
  1. FORTEO [Suspect]
     Indication: OSTEOPOROSIS
     Dates: start: 20030328
  2. CALCIUM [Concomitant]
  3. VITAMIN D [Concomitant]
  4. LEVOXYL [Concomitant]
  5. NEURONTIN [Concomitant]
  6. TRAZADONE (TRAZODONE) [Concomitant]

REACTIONS (4)
  - ASTHENIA [None]
  - DIZZINESS [None]
  - FEELING ABNORMAL [None]
  - INJECTION SITE PAIN [None]
